FAERS Safety Report 5032259-4 (Version None)
Quarter: 2006Q2

REPORT INFORMATION
  Report Type: 
  Country: None (occurrence: None)
  Receive Date: 20060619
  Receipt Date: 20060602
  Transmission Date: 20061013
  Serious: Yes (Hospitalization, Other)
  Sender: FDA-Public Use
  Company Number: US200605004172

PATIENT
  Age: 53 Year
  Sex: Female
  Weight: 50.8 kg

DRUGS (9)
  1. GEMZAR [Suspect]
     Indication: OVARIAN CANCER
     Dosage: 1200 MG, INTRAVENOUS
     Route: 042
     Dates: start: 20060222, end: 20060222
  2. GEMZAR [Suspect]
     Indication: OVARIAN CANCER
     Dosage: 1200 MG, INTRAVENOUS
     Route: 042
     Dates: start: 20060301, end: 20060301
  3. TAXOTERE [Concomitant]
  4. XANAX [Concomitant]
  5. VERAPAMIL [Concomitant]
  6. MOBIC [Concomitant]
  7. RANITIDINE HYDROCHLORIDE [Concomitant]
  8. SUMATRIPTAN SUCCINATE [Concomitant]
  9. LORAZEPAM [Concomitant]

REACTIONS (3)
  - COLITIS ISCHAEMIC [None]
  - MALIGNANT NEOPLASM PROGRESSION [None]
  - OVARIAN CANCER [None]
